FAERS Safety Report 7000743-X (Version None)
Quarter: 2010Q3

REPORT INFORMATION
  Report Type: 
  Country: None (occurrence: None)
  Receive Date: 20100920
  Receipt Date: 20100617
  Transmission Date: 20110219
  Serious: Yes (Hospitalization)
  Sender: FDA-Public Use
  Company Number: US-ASTRAZENECA-2010SE28352

PATIENT
  Sex: Female

DRUGS (2)
  1. SEROQUEL [Suspect]
     Indication: PARANOID PERSONALITY DISORDER
     Route: 048
     Dates: start: 20080101, end: 20080101
  2. SEROQUEL [Suspect]
     Indication: ANXIETY DISORDER
     Route: 048
     Dates: start: 20080101, end: 20080101

REACTIONS (4)
  - DIZZINESS [None]
  - FEELING ABNORMAL [None]
  - OVERDOSE [None]
  - SUICIDE ATTEMPT [None]
